FAERS Safety Report 17452651 (Version 4)
Quarter: 2020Q2

REPORT INFORMATION
  Report Type: Spontaneous
  Country: US (occurrence: US)
  Receive Date: 20200224
  Receipt Date: 20200602
  Transmission Date: 20200713
  Serious: No
  Sender: FDA-Public Use
  Company Number: US-ACTELION-A-NJ2020-201606

PATIENT
  Sex: Male
  Weight: 104.31 kg

DRUGS (2)
  1. WARFARIN [Suspect]
     Active Substance: WARFARIN
     Indication: PRODUCT USED FOR UNKNOWN INDICATION
     Route: 065
  2. OPSUMIT [Suspect]
     Active Substance: MACITENTAN
     Indication: PULMONARY ARTERIAL HYPERTENSION
     Dosage: 10 MG, QD
     Route: 048
     Dates: start: 20200108

REACTIONS (5)
  - Nasal congestion [Unknown]
  - Musculoskeletal pain [Unknown]
  - International normalised ratio increased [Unknown]
  - Hypotension [Not Recovered/Not Resolved]
  - Blood potassium decreased [Unknown]
